FAERS Safety Report 5781575-7 (Version None)
Quarter: 2008Q2

REPORT INFORMATION
  Report Type: 
  Country: None (occurrence: None)
  Receive Date: 20080623
  Receipt Date: 20080131
  Transmission Date: 20081010
  Serious: No
  Sender: FDA-Public Use
  Company Number: US-ASTRAZENECA-2007UW08828

PATIENT
  Age: 58 Year
  Sex: Male
  Weight: 83.9 kg

DRUGS (3)
  1. RHINOCORT [Suspect]
     Indication: MULTIPLE ALLERGIES
     Route: 045
  2. OMEPRAZOLE [Concomitant]
     Route: 048
  3. CLARITIN [Concomitant]

REACTIONS (1)
  - SKIN LACERATION [None]
